FAERS Safety Report 9559731 (Version 1)
Quarter: 2013Q3

REPORT INFORMATION
  Report Type: Spontaneous
  Country: MX (occurrence: MX)
  Receive Date: 20130927
  Receipt Date: 20130927
  Transmission Date: 20140515
  Serious: Yes (Death)
  Sender: FDA-Public Use
  Company Number: MX-B.I. PHARMACEUTICALS,INC./RIDGEFIELD-2013-MX-00303MX

PATIENT
  Age: 54 Year
  Sex: Female

DRUGS (1)
  1. PRADAXAR [Suspect]
     Indication: ATRIAL FIBRILLATION
     Dosage: 220 MG
     Dates: start: 2009, end: 2012

REACTIONS (2)
  - Cardiac operation [Fatal]
  - Gastric disorder [Unknown]
